FAERS Safety Report 16323547 (Version 29)
Quarter: 2024Q1

REPORT INFORMATION
  Report Type: Other
  Country: DE (occurrence: None)
  Receive Date: 20190517
  Receipt Date: 20240315
  Transmission Date: 20240410
  Serious: Yes (Hospitalization, Other)
  Sender: FDA-Public Use
  Company Number: DE-ROCHE-2267069

PATIENT
  Age: 57 Year
  Sex: Male

DRUGS (10)
  1. OCREVUS [Suspect]
     Active Substance: OCRELIZUMAB
     Indication: Primary progressive multiple sclerosis
     Dosage: 600 MG FREQUENCY: 168 DAYS, 173 DAYS
     Route: 042
     Dates: start: 20180615
  2. OCREVUS [Suspect]
     Active Substance: OCRELIZUMAB
     Dosage: 5TH INFUSION
     Route: 042
     Dates: start: 20191220
  3. OCREVUS [Suspect]
     Active Substance: OCRELIZUMAB
     Dosage: 6TH INFUSION
     Route: 042
     Dates: start: 20200605
  4. OCREVUS [Suspect]
     Active Substance: OCRELIZUMAB
     Route: 042
     Dates: start: 20210521
  5. XARELTO [Suspect]
     Active Substance: RIVAROXABAN
     Indication: Product used for unknown indication
     Route: 065
  6. XARELTO [Suspect]
     Active Substance: RIVAROXABAN
     Route: 065
  7. VARICELLA-ZOSTER VACCINE NOS [Suspect]
     Active Substance: VARICELLA-ZOSTER VACCINE
     Indication: Product used for unknown indication
     Route: 065
  8. IBUPROFEN [Concomitant]
     Active Substance: IBUPROFEN
  9. AMLODIPINE BESYLATE [Concomitant]
     Active Substance: AMLODIPINE BESYLATE
  10. OMEPRAZOLE [Concomitant]
     Active Substance: OMEPRAZOLE

REACTIONS (24)
  - Multiple sclerosis [Not Recovered/Not Resolved]
  - Cholelithiasis [Recovered/Resolved]
  - Nasopharyngitis [Recovered/Resolved]
  - Arrhythmia [Recovered/Resolved]
  - Multiple sclerosis [Not Recovered/Not Resolved]
  - Fall [Unknown]
  - Skin laceration [Recovered/Resolved]
  - Bleeding time prolonged [Recovered/Resolved]
  - Cholecystitis infective [Recovered/Resolved]
  - Dehydration [Recovered/Resolved]
  - Road traffic accident [Unknown]
  - Drug ineffective [Unknown]
  - Hypertension [Recovered/Resolved]
  - Body temperature increased [Recovered/Resolved]
  - Constipation [Recovered/Resolved]
  - Mental impairment [Recovered/Resolved]
  - Intervertebral disc protrusion [Recovered/Resolved]
  - SARS-CoV-2 test positive [Recovered/Resolved]
  - Fine motor skill dysfunction [Not Recovered/Not Resolved]
  - Fatigue [Recovered/Resolved]
  - Inappropriate schedule of product administration [Unknown]
  - Illness [Recovered/Resolved]
  - COVID-19 [Recovered/Resolved]
  - Asthenia [Recovered/Resolved]

NARRATIVE: CASE EVENT DATE: 20190131
